FAERS Safety Report 4321241-8 (Version None)
Quarter: 2004Q1

REPORT INFORMATION
  Report Type: 
  Country: None (occurrence: None)
  Receive Date: 20040322
  Receipt Date: 20040322
  Transmission Date: 20041129
  Serious: Yes (Death)
  Sender: FDA-Public Use
  Company Number: None

PATIENT
  Age: 65 Year
  Sex: Female
  Weight: 54.4316 kg

DRUGS (7)
  1. D-THREO-METHYLPHENIDATE HCL CELEGENE/BIOLOGICS [Suspect]
     Indication: METASTASES TO CENTRAL NERVOUS SYSTEM
     Dosage: 5 MG BID PO
     Route: 048
     Dates: start: 20020927, end: 20020930
  2. MEGACE [Concomitant]
  3. HUMALIN 70/30 [Concomitant]
  4. DECADRON [Concomitant]
  5. LORTAB [Concomitant]
  6. TORADAL [Concomitant]
  7. ARIMIDEX [Concomitant]

REACTIONS (1)
  - DISEASE PROGRESSION [None]
